FAERS Safety Report 24127146 (Version 1)
Quarter: 2024Q3

REPORT INFORMATION
  Report Type: Spontaneous
  Country: AU (occurrence: AU)
  Receive Date: 20240723
  Receipt Date: 20240723
  Transmission Date: 20241017
  Serious: Yes (Hospitalization, Other)
  Sender: CSL BEHRING
  Company Number: AU-BEH-2024176013

PATIENT
  Age: 64 Year
  Sex: Female

DRUGS (11)
  1. ALBUREX [Suspect]
     Active Substance: ALBUMIN HUMAN
     Dosage: UNK
     Route: 042
     Dates: start: 20240619
  2. CEFAZOLIN SODIUM [Suspect]
     Active Substance: CEFAZOLIN SODIUM
     Dosage: UNK
     Route: 065
  3. FENTANYL GH [Concomitant]
  4. LIVIAL [Concomitant]
     Active Substance: TIBOLONE
  5. LUMIGAN [Concomitant]
     Active Substance: BIMATOPROST
  6. MIDAZOLAM [Concomitant]
     Active Substance: MIDAZOLAM
  7. FLUTICASONE PROPIONATE\SALMETEROL XINAFOATE [Concomitant]
     Active Substance: FLUTICASONE PROPIONATE\SALMETEROL XINAFOATE
  8. SERTRALINE [Concomitant]
     Active Substance: SERTRALINE HYDROCHLORIDE
  9. MAGNESIUM [Concomitant]
     Active Substance: MAGNESIUM
  10. TRANEXAMIC ACID [Concomitant]
     Active Substance: TRANEXAMIC ACID
  11. VAGIFEM [Concomitant]
     Active Substance: ESTRADIOL

REACTIONS (3)
  - Hypotension [Recovering/Resolving]
  - Oxygen saturation decreased [Unknown]
  - Rash [Recovering/Resolving]

NARRATIVE: CASE EVENT DATE: 20240619
